FAERS Safety Report 7456920-7 (Version None)
Quarter: 2011Q1

REPORT INFORMATION
  Report Type: 
  Country: None (occurrence: None)
  Receive Date: 20110302
  Receipt Date: 20101025
  Transmission Date: 20110831
  Serious: Yes (Hospitalization)
  Sender: FDA-Public Use
  Company Number: 013828

PATIENT
  Sex: Female
  Weight: 97.5234 kg

DRUGS (4)
  1. PENTASA [Concomitant]
  2. PERCOCET [Concomitant]
  3. CIMZIA [Suspect]
     Indication: CROHN'S DISEASE
     Dosage: 400 MG 1X/4 WEEKS SUBCUTANEOUS
     Route: 058
     Dates: start: 20091201
  4. PROZAC [Concomitant]

REACTIONS (1)
  - CROHN'S DISEASE [None]
